FAERS Safety Report 9417141 (Version 1)
Quarter: 2013Q3

REPORT INFORMATION
  Report Type: Spontaneous
  Country: DE (occurrence: DE)
  Receive Date: 20130722
  Receipt Date: 20130722
  Transmission Date: 20140515
  Serious: Yes (Disabling)
  Sender: FDA-Public Use
  Company Number: TPA2013A02906

PATIENT
  Age: 62 Year
  Sex: Female

DRUGS (4)
  1. ADENURIC (FEBUXOSTAT) [Suspect]
     Indication: GOUT
     Route: 048
     Dates: start: 20120920, end: 20130411
  2. PREDNISOLON [Suspect]
     Indication: POLYMYALGIA RHEUMATICA
     Route: 048
     Dates: start: 201212, end: 20130411
  3. L-THYROXIN HENNING (LEVOTHYROXINE SODIUM) [Concomitant]
  4. SYMBICORT TURBOHALER PULVER (FOROTEROL FUMARATE, BUDESONIDE) [Concomitant]

REACTIONS (2)
  - Anosmia [None]
  - Ageusia [None]
